FAERS Safety Report 9245012 (Version 1)
Quarter: 2013Q1

REPORT INFORMATION
  Report Type: Spontaneous
  Country: US (occurrence: None)
  Receive Date: 20121130
  Receipt Date: 20121130
  Transmission Date: 20140127
  Serious: Yes (Other)
  Sender: FDA-Public Use
  Company Number: 358453

PATIENT
  Age: 50 Year
  Sex: Female

DRUGS (4)
  1. NOVOLOG FLEXPEN [Suspect]
     Indication: TYPE 2 DIABETES MELLITUS
     Dates: start: 2008
  2. METFORMIN (METFORMIN) [Concomitant]
  3. LANTUS (INSULIN GLARGINE) [Concomitant]
  4. VERAPAMIL (VERAPAMIL) [Suspect]

REACTIONS (3)
  - Expired drug administered [None]
  - Hypersensitivity [None]
  - Rash [None]
